FAERS Safety Report 17686179 (Version 2)
Quarter: 2020Q2

REPORT INFORMATION
  Report Type: Report from Study
  Country: CN (occurrence: CN)
  Receive Date: 20200420
  Receipt Date: 20200422
  Transmission Date: 20200714
  Serious: Yes (Hospitalization)
  Sender: FDA-Public Use
  Company Number: CN-EISAI MEDICAL RESEARCH-EC-2020-073489

PATIENT
  Age: 53 Year
  Sex: Female
  Weight: 67.5 kg

DRUGS (15)
  1. LENVATINIB [Suspect]
     Active Substance: LENVATINIB
     Route: 048
     Dates: start: 20200204
  2. PEMBROLIZUMAB. [Suspect]
     Active Substance: PEMBROLIZUMAB
     Indication: ENDOMETRIAL CANCER RECURRENT
     Route: 041
     Dates: start: 20191224, end: 20200115
  3. AMLODIPINE BESYLATE. [Concomitant]
     Active Substance: AMLODIPINE BESYLATE
     Dates: start: 20200327
  4. LOSARTAN POTASSIUM. [Concomitant]
     Active Substance: LOSARTAN POTASSIUM
     Dates: start: 201906
  5. CALCIUM [Concomitant]
     Active Substance: CALCIUM
     Dates: start: 20200215
  6. LENVATINIB [Suspect]
     Active Substance: LENVATINIB
     Indication: ENDOMETRIAL CANCER RECURRENT
     Dosage: FLUCTUATING DOSAGE
     Route: 048
     Dates: start: 20191224, end: 20200203
  7. METHYLPREDNISOLONE SODIUM SUCCINATE. [Concomitant]
     Active Substance: METHYLPREDNISOLONE SODIUM SUCCINATE
     Dates: start: 20200407
  8. ATORVASTATIN CALCIUM. [Concomitant]
     Active Substance: ATORVASTATIN CALCIUM
     Dates: start: 201906
  9. FU FANG GAN CAO SUAN DAN AN ZHU SHE YE [Concomitant]
     Dates: start: 20200224
  10. GLUTATHIONE [Concomitant]
     Active Substance: GLUTATHIONE
     Dates: start: 20200227
  11. ELECTROLYTES NOS [Concomitant]
     Active Substance: ELECTROLYTES NOS
     Dates: start: 20200414, end: 20200414
  12. PEMBROLIZUMAB. [Suspect]
     Active Substance: PEMBROLIZUMAB
     Route: 041
     Dates: start: 20200204, end: 20200204
  13. URSODIOL. [Concomitant]
     Active Substance: URSODIOL
     Dates: start: 20200324
  14. THYMALFASIN [Concomitant]
     Active Substance: THYMALFASIN
     Dates: start: 20200414, end: 20200414
  15. METHYLPREDNISOLONE SODIUM SUCCINATE. [Concomitant]
     Active Substance: METHYLPREDNISOLONE SODIUM SUCCINATE
     Dates: start: 20200331, end: 20200406

REACTIONS (1)
  - Pneumonia [Recovering/Resolving]

NARRATIVE: CASE EVENT DATE: 20200414
